FAERS Safety Report 5686921-0 (Version None)
Quarter: 2008Q1

REPORT INFORMATION
  Report Type: 
  Country: None (occurrence: None)
  Receive Date: 20080328
  Receipt Date: 20070507
  Transmission Date: 20080703
  Serious: No
  Sender: FDA-Public Use
  Company Number: US-BAYER-US-2007-016514

PATIENT
  Age: 19 Year
  Sex: Female
  Weight: 57 kg

DRUGS (3)
  1. MIRENA [Suspect]
     Indication: CONTRACEPTION
     Route: 015
     Dates: start: 20070325, end: 20070427
  2. ALBUTEROL [Concomitant]
     Route: 055
  3. PAXIL [Concomitant]
     Dosage: UNIT DOSE: 40 MG
     Route: 048
     Dates: start: 20070301

REACTIONS (2)
  - ABDOMINAL PAIN LOWER [None]
  - INTRA-UTERINE CONTRACEPTIVE DEVICE EXPELLED [None]
